FAERS Safety Report 23011968 (Version 2)
Quarter: 2023Q4

REPORT INFORMATION
  Report Type: Report from Study
  Country: AU (occurrence: AU)
  Receive Date: 20230929
  Receipt Date: 20231108
  Transmission Date: 20240110
  Serious: Yes (Hospitalization)
  Sender: FDA-Public Use
  Company Number: AU-GENMAB-2023-01732

PATIENT
  Age: 66 Year
  Sex: Male
  Weight: 120.2 kg

DRUGS (17)
  1. EPCORITAMAB [Suspect]
     Active Substance: EPCORITAMAB
     Indication: Follicular lymphoma stage II
     Dosage: C1D1
     Route: 058
     Dates: start: 20230919
  2. LENALIDOMIDE [Suspect]
     Active Substance: LENALIDOMIDE
     Indication: Follicular lymphoma stage II
     Dosage: 20 MILLIGRAM, QD
     Route: 048
     Dates: start: 20230919
  3. PROMETHAZINE [Concomitant]
     Active Substance: PROMETHAZINE HYDROCHLORIDE
     Indication: Premedication
     Dosage: 25 MILLIGRAM, SINGLE
     Route: 042
     Dates: start: 20230919, end: 20230919
  4. ACETAMINOPHEN [Concomitant]
     Active Substance: ACETAMINOPHEN
     Indication: Premedication
     Dosage: 1 GRAM, SINGLE
     Route: 042
     Dates: start: 20230919, end: 20230919
  5. DEXAMETHASONE [Concomitant]
     Active Substance: DEXAMETHASONE
     Indication: Prophylaxis
     Dosage: 16 MILLIGRAM, SINGLE
     Route: 048
     Dates: start: 20230919, end: 20230919
  6. PREDNISOLONE [Concomitant]
     Active Substance: PREDNISOLONE
     Indication: Prophylaxis
     Dosage: 100 MILLIGRAM, QD
     Route: 048
     Dates: start: 20230919, end: 20230922
  7. ASPIRIN [Concomitant]
     Active Substance: ASPIRIN
     Indication: Prophylaxis
     Dosage: 100 MILLIGRAM, QD
     Route: 048
     Dates: start: 20230911
  8. ASPIRIN [Concomitant]
     Active Substance: ASPIRIN
     Dosage: 100 MILLIGRAM, QD
     Route: 048
     Dates: start: 20230919
  9. CYMBALTA [Concomitant]
     Active Substance: DULOXETINE HYDROCHLORIDE
     Indication: Depression
     Dosage: 120 MILLIGRAM, QD
     Route: 048
     Dates: start: 2018
  10. MIRTAZAPINE [Concomitant]
     Active Substance: MIRTAZAPINE
     Indication: Sleep disorder
     Dosage: 60 MILLIGRAM, QD
     Route: 048
     Dates: start: 2018
  11. TADALAFIL [Concomitant]
     Active Substance: TADALAFIL
     Indication: Erectile dysfunction
     Dosage: 5 MILLIGRAM, QD
     Route: 048
     Dates: start: 2021
  12. ALPROSTADIL [Concomitant]
     Active Substance: ALPROSTADIL
     Indication: Erectile dysfunction
     Dosage: 40 MICROGRAM, PRN
     Route: 017
     Dates: start: 2021
  13. PAPAVERINE [Concomitant]
     Active Substance: PAPAVERINE
     Indication: Erectile dysfunction
     Dosage: 30 MICROGRAM, PRN
     Route: 017
     Dates: start: 2021
  14. PHENTOLAMINE [Concomitant]
     Active Substance: PHENTOLAMINE
     Indication: Erectile dysfunction
     Dosage: 4 MILLIGRAM, PRN
     Route: 017
     Dates: start: 2021
  15. LIDOCAINE [Concomitant]
     Active Substance: LIDOCAINE
     Dosage: 4 PERCENT, PRN
     Route: 017
     Dates: start: 20230908
  16. VALACYCLOVIR HYDROCHLORIDE [Concomitant]
     Active Substance: VALACYCLOVIR HYDROCHLORIDE
     Indication: Prophylaxis
     Dosage: 500 MILLIGRAM, QD
     Route: 048
     Dates: start: 20230919
  17. BACTRIM [Concomitant]
     Active Substance: SULFAMETHOXAZOLE\TRIMETHOPRIM
     Indication: Prophylaxis
     Dosage: 800 + 160 MG, FREQUENCY : M, W, F
     Route: 048
     Dates: start: 20230919

REACTIONS (1)
  - Infection [Recovered/Resolved]

NARRATIVE: CASE EVENT DATE: 20230923
